FAERS Safety Report 4303026-1 (Version None)
Quarter: 2004Q1

REPORT INFORMATION
  Report Type: 
  Country: None (occurrence: None)
  Receive Date: 20040223
  Receipt Date: 20040223
  Transmission Date: 20041129
  Serious: Yes (Hospitalization)
  Sender: FDA-Public Use
  Company Number: None

PATIENT
  Age: 73 Year
  Sex: Male
  Weight: 82 kg

DRUGS (7)
  1. WARFARIN SODIUM [Suspect]
     Indication: DEEP VEIN THROMBOSIS
     Dosage: 5 MG DAILY ORAL
     Route: 048
     Dates: start: 20030830, end: 20030903
  2. ASPIRIN [Suspect]
     Dosage: 326 MG DAILY ORAL
     Route: 048
     Dates: start: 20030831, end: 20030906
  3. NAFCILLIN SODIUM [Concomitant]
  4. INSULIN [Concomitant]
  5. METOPROLOL [Concomitant]
  6. TERAZOCIN [Concomitant]
  7. CEPHALEXIN [Concomitant]

REACTIONS (10)
  - DEPRESSED LEVEL OF CONSCIOUSNESS [None]
  - DROOLING [None]
  - FAECAL OCCULT BLOOD POSITIVE [None]
  - HAEMATOMA [None]
  - HYPERHIDROSIS [None]
  - INJECTION SITE HAEMORRHAGE [None]
  - INTERNATIONAL NORMALISED RATIO INCREASED [None]
  - MENTAL STATUS CHANGES [None]
  - RESPIRATION ABNORMAL [None]
  - SOMNOLENCE [None]
